FAERS Safety Report 5900439-9 (Version None)
Quarter: 2008Q3

REPORT INFORMATION
  Report Type: 
  Country: None (occurrence: None)
  Receive Date: 20080926
  Receipt Date: 20080916
  Transmission Date: 20090109
  Serious: Yes (Other)
  Sender: FDA-Public Use
  Company Number: BR-PFIZER INC-2008053523

PATIENT
  Sex: Male
  Weight: 77 kg

DRUGS (4)
  1. GEODON [Suspect]
     Indication: HALLUCINATION, AUDITORY
     Route: 048
     Dates: start: 20080401
  2. GEODON [Suspect]
     Indication: SCHIZOPHRENIA
  3. RIVOTRIL [Concomitant]
     Dates: start: 20060101
  4. DEPAKENE [Concomitant]
     Dates: start: 20060101

REACTIONS (18)
  - ANXIETY [None]
  - ASTHENIA [None]
  - DELIRIUM [None]
  - DIZZINESS [None]
  - DRY MOUTH [None]
  - ENDODONTIC PROCEDURE [None]
  - EXTRAPYRAMIDAL DISORDER [None]
  - FEELING ABNORMAL [None]
  - HEADACHE [None]
  - INSOMNIA [None]
  - PAIN [None]
  - PHARYNGEAL OEDEMA [None]
  - PYREXIA [None]
  - SALIVARY HYPERSECRETION [None]
  - SCHIZOPHRENIA [None]
  - SOMNOLENCE [None]
  - SUICIDAL IDEATION [None]
  - TREMOR [None]
